FAERS Safety Report 6013842-6 (Version None)
Quarter: 2008Q4

REPORT INFORMATION
  Report Type: 
  Country: None (occurrence: None)
  Receive Date: 20081216
  Receipt Date: 20071031
  Transmission Date: 20090506
  Serious: Yes (Other)
  Sender: FDA-Public Use
  Company Number: US-WYE-H00979107

PATIENT
  Age: 45 Year
  Sex: Female
  Weight: 52.21 kg

DRUGS (5)
  1. EFFEXOR XR [Suspect]
     Indication: ANXIETY
     Dosage: USED 37.5 MG INTERMITTENTLY, ORAL
     Route: 048
     Dates: start: 20070101, end: 20071001
  2. EFFEXOR XR [Suspect]
     Indication: CHEST PAIN
     Dosage: USED 37.5 MG INTERMITTENTLY, ORAL
     Route: 048
     Dates: start: 20070101, end: 20071001
  3. EFFEXOR XR [Suspect]
     Indication: MUSCULOSKELETAL CHEST PAIN
     Dosage: USED 37.5 MG INTERMITTENTLY, ORAL
     Route: 048
     Dates: start: 20070101, end: 20071001
  4. LOESTRIN 1.5/30 [Concomitant]
  5. PROTONIX [Concomitant]

REACTIONS (2)
  - BLOOD PRESSURE INCREASED [None]
  - LOSS OF LIBIDO [None]
